FAERS Safety Report 13790031 (Version 2)
Quarter: 2017Q3

REPORT INFORMATION
  Report Type: Report from Study
  Country: BR (occurrence: BR)
  Receive Date: 20170725
  Receipt Date: 20170807
  Transmission Date: 20171127
  Serious: Yes (Other)
  Sender: FDA-Public Use
  Company Number: PHHY2017BR082260

PATIENT
  Sex: Female
  Weight: 72 kg

DRUGS (5)
  1. XOLAIR [Suspect]
     Active Substance: OMALIZUMAB
     Indication: ASTHMA
  2. LORATADINE. [Concomitant]
     Active Substance: LORATADINE
     Indication: PRODUCT USED FOR UNKNOWN INDICATION
     Route: 065
  3. BUDESONIDE. [Concomitant]
     Active Substance: BUDESONIDE
     Indication: ASTHMA
     Dosage: 200 MG, TID (APPROXIMATELY NINE YEARS)
     Route: 055
  4. XOLAIR [Suspect]
     Active Substance: OMALIZUMAB
     Indication: ASTHMA
     Dosage: 150 MG, TWO APPLICATIONS ON ARM (STARTED APPROXIMATELY NINE YEARS)
     Route: 065
     Dates: end: 201701
  5. FORASEQ [Concomitant]
     Active Substance: BUDESONIDE\FORMOTEROL FUMARATE
     Indication: ASTHMA
     Dosage: 1DF (12/400 UG), BID (APPROXIMATELY NINE YEARS)
     Route: 055

REACTIONS (9)
  - Malaise [Unknown]
  - Asthmatic crisis [Recovering/Resolving]
  - Fatigue [Not Recovered/Not Resolved]
  - Rhinitis [Unknown]
  - Dyspnoea [Unknown]
  - Headache [Unknown]
  - Chest pain [Not Recovered/Not Resolved]
  - Concomitant disease aggravated [Unknown]
  - Hypersensitivity [Unknown]
